FAERS Safety Report 8196291-4 (Version None)
Quarter: 2012Q1

REPORT INFORMATION
  Report Type: 
  Country: None (occurrence: None)
  Receive Date: 20120229
  Receipt Date: 20100809
  Transmission Date: 20120608
  Serious: No
  Sender: FDA-Public Use
  Company Number: 010670

PATIENT
  Age: 90 Year
  Sex: Female

DRUGS (2)
  1. SAMSCA [Suspect]
     Indication: BLOOD SODIUM DECREASED
     Dosage: 15 MG, SINGLE, ORAL 30 MG, SINGLE, ORAL
     Route: 048
     Dates: start: 20100808, end: 20100808
  2. SAMSCA [Suspect]
     Indication: BLOOD SODIUM DECREASED
     Dosage: 15 MG, SINGLE, ORAL 30 MG, SINGLE, ORAL
     Route: 048
     Dates: start: 20100807, end: 20100807

REACTIONS (2)
  - BLOOD SODIUM INCREASED [None]
  - BLOOD GLUCOSE INCREASED [None]
